FAERS Safety Report 7750648-1 (Version None)
Quarter: 2011Q3

REPORT INFORMATION
  Report Type: 
  Country: None (occurrence: None)
  Receive Date: 20110914
  Receipt Date: 20110831
  Transmission Date: 20111222
  Serious: Yes (Death, Hospitalization)
  Sender: FDA-Public Use
  Company Number: US-GLAXOSMITHKLINE-B0709491A

PATIENT
  Age: 82 Year
  Sex: Female

DRUGS (9)
  1. AVANDIA [Suspect]
     Indication: DIABETES MELLITUS
     Dosage: 8MG PER DAY
     Route: 048
     Dates: start: 20050210, end: 20050518
  2. NITROGLYCERIN [Concomitant]
  3. HUMULIN R [Concomitant]
  4. NORVASC [Concomitant]
  5. COREG [Concomitant]
  6. POTASSIUM CHLORIDE [Concomitant]
  7. ALBUTEROL [Concomitant]
  8. LASIX [Concomitant]
  9. MONOPRIL [Concomitant]

REACTIONS (5)
  - RENAL FAILURE ACUTE [None]
  - CARDIAC ARREST [None]
  - CEREBROVASCULAR ACCIDENT [None]
  - SEPSIS [None]
  - CARDIAC FAILURE CONGESTIVE [None]
